FAERS Safety Report 24252431 (Version 1)
Quarter: 2024Q3

REPORT INFORMATION
  Report Type: Spontaneous
  Country: ZA (occurrence: None)
  Receive Date: 20240827
  Receipt Date: 20240827
  Transmission Date: 20241017
  Serious: Yes (Other)
  Sender: ASTRAZENECA
  Company Number: 2024A190354

PATIENT
  Sex: Female

DRUGS (7)
  1. BUDESONIDE\FORMOTEROL [Suspect]
     Active Substance: BUDESONIDE\FORMOTEROL
     Indication: Asthma
     Dosage: 4.5UG/INHAL, UNKNOWN UNKNOWN
     Route: 055
  2. BUDESONIDE\FORMOTEROL [Suspect]
     Active Substance: BUDESONIDE\FORMOTEROL
     Indication: Asthma
     Dosage: 160UG/INHAL, UNKNOWN UNKNOWN
     Route: 055
  3. ENALAPRIL [Concomitant]
     Active Substance: ENALAPRIL
     Indication: Hypertension
     Route: 048
  4. DORMONOCT [Concomitant]
     Active Substance: LOPRAZOLAM
     Indication: African trypanosomiasis
     Route: 048
  5. FUROSEMIDE [Concomitant]
     Active Substance: FUROSEMIDE
     Indication: Hypertension
     Route: 048
  6. PANTOCID [Concomitant]
     Indication: Ulcer
     Route: 048
  7. SERDEP [Concomitant]
     Indication: Mental disorder
     Route: 048

REACTIONS (2)
  - Illness [Unknown]
  - Diarrhoea [Unknown]
